FAERS Safety Report 7596767-4 (Version None)
Quarter: 2011Q3

REPORT INFORMATION
  Report Type: 
  Country: None (occurrence: None)
  Receive Date: 20110708
  Receipt Date: 20110701
  Transmission Date: 20111222
  Serious: No
  Sender: FDA-Public Use
  Company Number: US-PFIZER INC-2011028599

PATIENT
  Sex: Male
  Weight: 81.633 kg

DRUGS (4)
  1. OXYCODONE HCL [Suspect]
     Indication: MUSCULOSKELETAL PAIN
     Dosage: 40 MG, UNK
  2. TERAZOSIN [Concomitant]
     Indication: BLOOD PRESSURE ABNORMAL
     Dosage: 2 MG, UNK
  3. ADVIL LIQUI-GELS [Suspect]
     Indication: MUSCULOSKELETAL PAIN
     Dosage: 200 MG, 2X/DAY
     Route: 048
     Dates: start: 20101201
  4. ZOCOR [Concomitant]
     Indication: PROPHYLAXIS
     Dosage: 10 MG, UNK

REACTIONS (2)
  - DRUG INEFFECTIVE [None]
  - MALAISE [None]
